FAERS Safety Report 12127733 (Version 4)
Quarter: 2016Q2

REPORT INFORMATION
  Report Type: Report from Study
  Country: US (occurrence: US)
  Receive Date: 20160229
  Receipt Date: 20160412
  Transmission Date: 20160815
  Serious: Yes (Life-Threatening)
  Sender: FDA-Public Use
  Company Number: US-BAXTER-2016BAX008655

PATIENT
  Age: 66 Year
  Sex: Male
  Weight: 89.99 kg

DRUGS (10)
  1. VINCRISTINE [Suspect]
     Active Substance: VINCRISTINE
     Indication: NON-HODGKIN^S LYMPHOMA
     Dosage: 2 UNITS NOT REPORTED, MOST RECENT DOSE PRIOR TO EVENT
     Route: 042
     Dates: start: 20160208
  2. PREDNISOLONE. [Suspect]
     Active Substance: PREDNISOLONE
     Indication: NON-HODGKIN^S LYMPHOMA
     Route: 042
     Dates: start: 20160208
  3. COMPAZINE [Concomitant]
     Active Substance: PROCHLORPERAZINE MALEATE
     Indication: NAUSEA
     Route: 065
     Dates: start: 20160208
  4. CYCLOPHOSPHAMIDE FOR INJECTION, USP [Suspect]
     Active Substance: CYCLOPHOSPHAMIDE
     Indication: NON-HODGKIN^S LYMPHOMA
     Dosage: SINGLE DOSE, 1657 UNITS NOT REPORTED, MOST RECENT DOSE PRIOR TO EVENT
     Route: 042
     Dates: start: 20160208
  5. ALLOPURINOL. [Concomitant]
     Active Substance: ALLOPURINOL
     Indication: TUMOUR LYSIS SYNDROME
     Route: 065
     Dates: start: 20160209
  6. RITUXIMAB [Suspect]
     Active Substance: RITUXIMAB
     Indication: NON-HODGKIN^S LYMPHOMA
     Dosage: 828 UNITS NOT REPORTED, MOST RECENT DOSE PRIOR TO EVENT
     Route: 042
     Dates: start: 20160208
  7. DOXORUBICIN [Suspect]
     Active Substance: DOXORUBICIN
     Indication: NON-HODGKIN^S LYMPHOMA
     Dosage: 110 UNITS NOT REPORTED, MOST RECENT DOSE PRIOR TO EVENT
     Route: 042
     Dates: start: 20160208
  8. PREDNISOLONE. [Suspect]
     Active Substance: PREDNISOLONE
     Dosage: MOST RECENT DOSE PRIOR TO THE EVENT
     Route: 042
     Dates: start: 20160210
  9. BLACK SEED OIL [Concomitant]
     Indication: PRODUCT USED FOR UNKNOWN INDICATION
     Route: 065
     Dates: start: 20160201, end: 20160207
  10. COUMADIN [Concomitant]
     Active Substance: WARFARIN SODIUM
     Indication: CATHETER MANAGEMENT
     Route: 065
     Dates: start: 20160208

REACTIONS (1)
  - Gastrointestinal perforation [Recovered/Resolved]

NARRATIVE: CASE EVENT DATE: 20160210
